FAERS Safety Report 9292291 (Version 2)
Quarter: 2013Q2

REPORT INFORMATION
  Report Type: Report from Study
  Country: IN (occurrence: IN)
  Receive Date: 20130516
  Receipt Date: 20130602
  Transmission Date: 20140414
  Serious: Yes (Other)
  Sender: FDA-Public Use
  Company Number: PHHY2013IN047408

PATIENT
  Age: 63 Year
  Sex: Male

DRUGS (6)
  1. ACLASTA [Suspect]
     Indication: OSTEOPOROSIS
     Dosage: 5 MG
     Route: 042
     Dates: start: 20120507
  2. OSTEOFOS [Concomitant]
     Indication: OSTEOPOROSIS
     Dosage: UNK
     Route: 048
  3. ANTIOXIDANT [Concomitant]
     Dosage: UNK
     Route: 048
  4. MULTIVITAMINS [Concomitant]
     Dosage: UNK
     Route: 048
  5. CALCIUM [Concomitant]
     Dosage: UNK
  6. VITAMIN D [Concomitant]

REACTIONS (1)
  - Femur fracture [Unknown]
